FAERS Safety Report 7927658-4 (Version None)
Quarter: 2011Q4

REPORT INFORMATION
  Report Type: 
  Country: None (occurrence: None)
  Receive Date: 20111118
  Receipt Date: 20111011
  Transmission Date: 20120403
  Serious: Yes (Hospitalization)
  Sender: FDA-Public Use
  Company Number: US-ROCHE-592905

PATIENT
  Sex: Female
  Weight: 117 kg

DRUGS (21)
  1. NASONEX [Concomitant]
  2. MULTI-VITAMIN [Concomitant]
  3. SARGRAMOSTIM [Suspect]
     Indication: PRODUCT USED FOR UNKNOWN INDICATION
     Route: 030
  4. XANAX [Concomitant]
  5. AMITRIPTYLINE HCL [Concomitant]
  6. ESTRAVAL [Concomitant]
  7. CARBOPLATIN [Suspect]
     Indication: BREAST CANCER
     Dosage: DOSAGE: 6 AUC; TOTAL DOSE 1130 MG; FORM VIAL; LAST DOSE PRIOR TO EVENT ON 9 OCT 08.
     Route: 042
  8. LOMOTIL [Concomitant]
  9. KYTRIL [Concomitant]
  10. HERCEPTIN [Suspect]
     Dosage: DOSE: 708.
     Route: 042
  11. AVASTIN [Suspect]
     Indication: BREAST CANCER
     Dosage: TOTAL DOSE: 1770 MG; FORM: VIALS; LAST DOSE PRIOR TO EVENT ON 9 OCT 2008
     Route: 042
  12. DOCETAXEL [Suspect]
     Indication: BREAST CANCER
     Dosage: FORM: VIALS; TOTAL DOSE: 172; LAST DOSE PRIOR TO EVENT ON 9 OCT 08
     Route: 042
  13. CELL WISE [Concomitant]
  14. KYTRIL [Concomitant]
  15. ADVAIR DISKUS 100/50 [Concomitant]
  16. SYNTHROID [Concomitant]
  17. PAXIL [Concomitant]
  18. PHENERGAN [Concomitant]
  19. HERCEPTIN [Suspect]
     Indication: BREAST CANCER
     Dosage: TOTAL DOSE: 940 MG; FORM : VIALS; LAST DOSE PROR TO EVENT ON 9 OCT 08
     Route: 042
  20. GABAPENTIN [Concomitant]
  21. ESTRAVAL [Concomitant]

REACTIONS (12)
  - HEADACHE [None]
  - DIVERTICULITIS [None]
  - PNEUMONIA [None]
  - DIARRHOEA [None]
  - OESOPHAGITIS [None]
  - PYREXIA [None]
  - OROPHARYNGEAL PAIN [None]
  - HAEMOGLOBIN DECREASED [None]
  - SINUS TACHYCARDIA [None]
  - BUNDLE BRANCH BLOCK RIGHT [None]
  - CHEST PAIN [None]
  - GASTRITIS [None]
